FAERS Safety Report 6569824-9 (Version None)
Quarter: 2010Q1

REPORT INFORMATION
  Report Type: 
  Country: None (occurrence: None)
  Receive Date: 20100125
  Receipt Date: 20091001
  Transmission Date: 20100710
  Serious: Yes (Hospitalization)
  Sender: FDA-Public Use
  Company Number: 2009BI023595

PATIENT
  Age: 45 Year
  Sex: Male

DRUGS (14)
  1. TYSABRI [Suspect]
     Indication: MULTIPLE SCLEROSIS
     Dosage: 300 MG;QM;IV
     Route: 042
     Dates: start: 20070104
  2. AMBIEN [Concomitant]
  3. LEXAPRO [Concomitant]
  4. NEURONTIN [Concomitant]
  5. COLACE [Concomitant]
  6. PRILOSEC [Concomitant]
  7. INSULIN [Concomitant]
  8. OSCAL [Concomitant]
  9. ASPIRIN [Concomitant]
  10. BACLOFEN [Concomitant]
  11. NOVOLOG [Concomitant]
  12. ANTIVERT [Concomitant]
  13. LISINOPRIL [Concomitant]
  14. AVONEX [Concomitant]

REACTIONS (6)
  - ASTHENIA [None]
  - CONSTIPATION [None]
  - MULTIPLE SCLEROSIS [None]
  - NEUROGENIC BLADDER [None]
  - TYPE 1 DIABETES MELLITUS [None]
  - UROSEPSIS [None]
